FAERS Safety Report 19966643 (Version 1)
Quarter: 2021Q4

REPORT INFORMATION
  Report Type: Spontaneous
  Country: US (occurrence: US)
  Receive Date: 20211018
  Receipt Date: 20211018
  Transmission Date: 20220303
  Serious: No
  Sender: FDA-Public Use
  Company Number: US-SANOFI-00806800

PATIENT
  Sex: Female

DRUGS (1)
  1. DUPIXENT [Suspect]
     Active Substance: DUPILUMAB
     Indication: Chronic rhinosinusitis with nasal polyps
     Dates: start: 20210731

REACTIONS (3)
  - Rash vesicular [Not Recovered/Not Resolved]
  - Pruritus [Recovered/Resolved]
  - Erythema [Not Recovered/Not Resolved]
